FAERS Safety Report 8212606-2 (Version None)
Quarter: 2012Q1

REPORT INFORMATION
  Report Type: 
  Country: None (occurrence: None)
  Receive Date: 20120315
  Receipt Date: 20120307
  Transmission Date: 20120608
  Serious: Yes (Hospitalization)
  Sender: FDA-Public Use
  Company Number: US-BAYER-2011-069280

PATIENT
  Age: 35 Year
  Sex: Female
  Weight: 90.703 kg

DRUGS (3)
  1. YASMIN [Suspect]
     Dosage: UNK
     Dates: start: 20041101, end: 20050801
  2. ST. JOHN'S WORT [Concomitant]
     Dosage: UNK
     Route: 048
     Dates: start: 20050101
  3. NSAID'S [Concomitant]
     Dosage: UNK
     Route: 048
     Dates: start: 20000101, end: 20100101

REACTIONS (4)
  - GALLBLADDER DISORDER [None]
  - CHOLECYSTITIS CHRONIC [None]
  - INJURY [None]
  - PAIN [None]
